FAERS Safety Report 15730184 (Version 1)
Quarter: 2018Q4

REPORT INFORMATION
  Report Type: Spontaneous
  Country: AU (occurrence: AU)
  Receive Date: 20181217
  Receipt Date: 20181217
  Transmission Date: 20190205
  Serious: Yes (Hospitalization, Other)
  Sender: FDA-Public Use
  Company Number: AU-SA-2018SA336954

PATIENT
  Age: 73 Year
  Sex: Male

DRUGS (15)
  1. OXYCODONE [Concomitant]
     Active Substance: OXYCODONE
     Dosage: UNK UNK, UNK
     Route: 065
  2. RANITIDINE. [Suspect]
     Active Substance: RANITIDINE
     Dosage: UNK UNK, UNK
     Route: 065
  3. TAPENTADOL [Concomitant]
     Active Substance: TAPENTADOL
     Dosage: UNK
  4. GLICLAZIDE [Concomitant]
     Active Substance: GLICLAZIDE
     Dosage: UNK UNK, UNK
  5. IRBESARTAN. [Suspect]
     Active Substance: IRBESARTAN
     Dosage: UNK UNK, UNK
  6. POSACONAZOLE [Suspect]
     Active Substance: POSACONAZOLE
     Dosage: UNK UNK, UNK
  7. METFORMIN HYDROCHLORIDE. [Suspect]
     Active Substance: METFORMIN HYDROCHLORIDE
     Dosage: UNK UNK, UNK
     Route: 065
  8. AMLODIPINE [Concomitant]
     Active Substance: AMLODIPINE BESYLATE
     Dosage: UNK UNK, UNK
     Route: 065
  9. ESCITALOPRAM OXALATE. [Suspect]
     Active Substance: ESCITALOPRAM OXALATE
     Dosage: UNK UNK, UNK
  10. ASPIRIN [ACETYLSALICYLIC ACID] [Concomitant]
     Active Substance: ASPIRIN
     Dosage: UNK UNK, UNK
  11. ONDANSETRON [Suspect]
     Active Substance: ONDANSETRON
     Dosage: UNK UNK, UNK
  12. AMPHOTERICIN B. [Suspect]
     Active Substance: AMPHOTERICIN B
     Dosage: UNK UNK, UNK
  13. METOCLOPRAMIDE. [Concomitant]
     Active Substance: METOCLOPRAMIDE
     Dosage: UNK UNK, UNK
  14. ROSUVASTATIN. [Concomitant]
     Active Substance: ROSUVASTATIN
     Dosage: UNK UNK, UNK
     Route: 065
  15. ISAVUCONAZOLE [Suspect]
     Active Substance: ISAVUCONAZOLE
     Dosage: UNK UNK, UNK
     Route: 065

REACTIONS (9)
  - Malaise [Unknown]
  - Blood creatinine increased [Unknown]
  - Hypomagnesaemia [Recovered/Resolved]
  - Nausea [Recovered/Resolved]
  - Acute kidney injury [Unknown]
  - Asthenia [Unknown]
  - Lethargy [Unknown]
  - Vomiting [Recovered/Resolved]
  - Myalgia [Recovered/Resolved]
